FAERS Safety Report 25072188 (Version 1)
Quarter: 2025Q1

REPORT INFORMATION
  Report Type: Report from Study
  Country: US (occurrence: US)
  Receive Date: 20250313
  Receipt Date: 20250313
  Transmission Date: 20250409
  Serious: No
  Sender: SANDOZ
  Company Number: US-SANDOZ-SDZ2024US105148

PATIENT
  Age: 12 Year
  Sex: Female

DRUGS (6)
  1. OMNITROPE [Suspect]
     Active Substance: SOMATROPIN
     Indication: Short stature
     Dosage: 1.4 MG, QD
     Route: 058
     Dates: start: 20241219
  2. OMNITROPE [Suspect]
     Active Substance: SOMATROPIN
     Indication: Short stature
     Dosage: 1.4 MG, QD
     Route: 058
     Dates: start: 20241219
  3. OMNITROPE [Suspect]
     Active Substance: SOMATROPIN
     Dosage: 1.4 MG, QD
     Route: 058
     Dates: start: 20241220, end: 20241223
  4. OMNITROPE [Suspect]
     Active Substance: SOMATROPIN
     Dosage: 1.4 MG, QD
     Route: 058
     Dates: start: 20241220, end: 20241223
  5. OMNITROPE [Suspect]
     Active Substance: SOMATROPIN
     Dosage: 1.4 MG, QD
     Route: 058
     Dates: start: 20241216
  6. OMNITROPE [Suspect]
     Active Substance: SOMATROPIN
     Dosage: 1.4 MG, QD
     Route: 058
     Dates: start: 20241216

REACTIONS (9)
  - Injection site haemorrhage [Unknown]
  - Injection site pain [Unknown]
  - Injection site discharge [Not Recovered/Not Resolved]
  - Incorrect dose administered by device [Unknown]
  - Product packaging quantity issue [Unknown]
  - Product container issue [Unknown]
  - Needle issue [Unknown]
  - Device leakage [Unknown]
  - Device breakage [Unknown]

NARRATIVE: CASE EVENT DATE: 20241219
